FAERS Safety Report 10265613 (Version 2)
Quarter: 2014Q2

REPORT INFORMATION
  Report Type: Spontaneous
  Country: TW (occurrence: TW)
  Receive Date: 20140627
  Receipt Date: 20140627
  Transmission Date: 20141212
  Serious: Yes (Death, Life-Threatening, Hospitalization)
  Sender: FDA-Public Use
  Company Number: PHHY2014TW073431

PATIENT
  Age: 55 Year
  Sex: Female

DRUGS (4)
  1. SEBIVO [Suspect]
     Indication: HEPATITIS B
     Dosage: 600 MG, DAILY
     Route: 048
     Dates: start: 2014
  2. ENDOXAN [Concomitant]
     Dosage: 500 MG, PER VIAL
     Dates: start: 20131227, end: 20140225
  3. HERCEPTIN [Concomitant]
     Dosage: UNK
     Dates: start: 20131227, end: 20140318
  4. TAXOTERE [Concomitant]
     Dosage: 1 DF, UNK
     Dates: start: 20131227, end: 20140225

REACTIONS (5)
  - Death [Fatal]
  - Acute hepatitis B [Not Recovered/Not Resolved]
  - Hepatitis B DNA increased [Not Recovered/Not Resolved]
  - Alanine aminotransferase increased [Unknown]
  - Blood bilirubin increased [Unknown]
